FAERS Safety Report 6450808-6 (Version None)
Quarter: 2009Q4

REPORT INFORMATION
  Report Type: 
  Country: None (occurrence: None)
  Receive Date: 20091123
  Receipt Date: 20091118
  Transmission Date: 20100525
  Serious: Yes (Other)
  Sender: FDA-Public Use
  Company Number: JP-ABBOTT-09P-087-0607651-00

PATIENT
  Age: 67 Year
  Sex: Female

DRUGS (5)
  1. SEVOFLURANE [Suspect]
     Indication: MAINTENANCE OF ANAESTHESIA
  2. PROPOFOL [Suspect]
     Indication: INDUCTION OF ANAESTHESIA
  3. REMIFENTANIL [Concomitant]
     Indication: MAINTENANCE OF ANAESTHESIA
  4. ROCURONIUM BROMIDE [Concomitant]
     Indication: INDUCTION OF ANAESTHESIA
  5. CORTICOSTEROIDS [Concomitant]

REACTIONS (1)
  - SALIVARY GLAND ENLARGEMENT [None]
